FAERS Safety Report 24766455 (Version 1)
Quarter: 2024Q4

REPORT INFORMATION
  Report Type: Spontaneous
  Country: US (occurrence: US)
  Receive Date: 20241223
  Receipt Date: 20241223
  Transmission Date: 20250115
  Serious: No
  Sender: PFIZER
  Company Number: US-PFIZER INC-PV202400165784

PATIENT
  Age: 88 Year
  Sex: Female

DRUGS (1)
  1. XELJANZ XR [Suspect]
     Active Substance: TOFACITINIB CITRATE
     Indication: Rheumatoid arthritis
     Dosage: 11 MG, 1X/DAY (DATE OF START OF THERAPY 2018 OR 2019 EXACT DATE NOT PROVIDED))
     Route: 048

REACTIONS (3)
  - Malaise [Unknown]
  - Intentional dose omission [Unknown]
  - Product dose omission in error [Unknown]
